FAERS Safety Report 6404904-X (Version None)
Quarter: 2009Q4

REPORT INFORMATION
  Report Type: 
  Country: None (occurrence: None)
  Receive Date: 20091013
  Receipt Date: 20091008
  Transmission Date: 20100525
  Serious: Yes (Hospitalization)
  Sender: FDA-Public Use
  Company Number: 2009SP011828

PATIENT
  Age: 70 Year
  Sex: Female

DRUGS (2)
  1. BETAMETHASONE [Suspect]
     Dosage: 3 MG; QD; PO
     Route: 048
     Dates: start: 20090423, end: 20090427
  2. PREDNISONE [Suspect]
     Indication: PAIN
     Dosage: 20 MG; QD; PO
     Route: 048
     Dates: start: 20090409, end: 20090420

REACTIONS (2)
  - ACUTE GENERALISED EXANTHEMATOUS PUSTULOSIS [None]
  - CONDITION AGGRAVATED [None]
